FAERS Safety Report 7132427-1 (Version None)
Quarter: 2010Q4

REPORT INFORMATION
  Report Type: 
  Country: None (occurrence: None)
  Receive Date: 20101130
  Receipt Date: 20101130
  Transmission Date: 20110411
  Serious: Yes (Death)
  Sender: FDA-Public Use
  Company Number: None

PATIENT
  Age: 4 Day
  Sex: Male
  Weight: 2.7216 kg

DRUGS (1)
  1. EFFEXOR XR [Suspect]
     Indication: POSTPARTUM DEPRESSION
     Dosage: 75MG ONCE DAILY PO
     Route: 048
     Dates: start: 20000801, end: 20101125

REACTIONS (8)
  - CARDIAC ARREST [None]
  - DEATH NEONATAL [None]
  - DRUG DEPENDENCE [None]
  - FAILURE TO THRIVE [None]
  - FOETAL GROWTH RESTRICTION [None]
  - GROWTH RETARDATION [None]
  - HYPOPLASTIC LEFT HEART SYNDROME [None]
  - MALAISE [None]
